FAERS Safety Report 19164173 (Version 2)
Quarter: 2021Q2

REPORT INFORMATION
  Report Type: Spontaneous
  Country: US (occurrence: US)
  Receive Date: 20210421
  Receipt Date: 20210628
  Transmission Date: 20210717
  Serious: Yes (Life-Threatening, Disabling)
  Sender: FDA-Public Use
  Company Number: US-AMERICAN REGENT INC-2021000970

PATIENT
  Age: 42 Year
  Sex: Female
  Weight: 141.04 kg

DRUGS (28)
  1. INJECTAFER [Suspect]
     Active Substance: FERRIC CARBOXYMALTOSE
     Dosage: 750 MILLIGRAM, SINGLE
     Route: 042
     Dates: start: 20171006, end: 20171006
  2. DEXAMETHASONE SODIUM PHOSPHATE. [Concomitant]
     Active Substance: DEXAMETHASONE SODIUM PHOSPHATE
     Indication: PREMEDICATION
     Dosage: 10 MILLIGRAM DAILY OVER 20 MINUTES FOR 1 DAY IN NS 50 ML
     Route: 042
     Dates: start: 20150313, end: 20150313
  3. DEXAMETHASONE SODIUM PHOSPHATE. [Concomitant]
     Active Substance: DEXAMETHASONE SODIUM PHOSPHATE
     Dosage: 10 MILLIGRAM, SINGLE
     Route: 042
     Dates: start: 20170929, end: 20170929
  4. DIPHENHYDRAMINE HCL [Interacting]
     Active Substance: DIPHENHYDRAMINE HYDROCHLORIDE
     Dosage: 25 MILLIGRAM, SINGLE
     Route: 042
     Dates: start: 20180511, end: 20180511
  5. PEPCID [Concomitant]
     Active Substance: FAMOTIDINE
     Dosage: 20 MILLIGRAM, SINGLE
     Route: 042
     Dates: start: 20170929, end: 20170929
  6. PEPCID [Concomitant]
     Active Substance: FAMOTIDINE
     Dosage: 20 MILLIGRAM, SINGLE
     Route: 042
     Dates: start: 20180511, end: 20180511
  7. SEASONIQUE [Concomitant]
     Active Substance: ETHINYL ESTRADIOL\LEVONORGESTREL
     Indication: PRODUCT USED FOR UNKNOWN INDICATION
     Dosage: 1 TABLET (0.15?0.03 + 0.01 MG) DAILY
     Route: 048
  8. INJECTAFER [Suspect]
     Active Substance: FERRIC CARBOXYMALTOSE
     Dosage: 750 MILLIGRAM DAILY OVER 15 MINUTES FOR 1 DAY IN NS 250 ML
     Route: 042
     Dates: start: 20160909, end: 20160909
  9. INJECTAFER [Suspect]
     Active Substance: FERRIC CARBOXYMALTOSE
     Dosage: 750 MILLIGRAM, SINGLE
     Route: 042
     Dates: start: 20170929, end: 20170929
  10. INJECTAFER [Suspect]
     Active Substance: FERRIC CARBOXYMALTOSE
     Dosage: 750 MILLIGRAM, SINGLE
     Route: 042
     Dates: start: 20180518, end: 20180518
  11. DEXAMETHASONE SODIUM PHOSPHATE. [Concomitant]
     Active Substance: DEXAMETHASONE SODIUM PHOSPHATE
     Dosage: 10 MILLIGRAM DAILY OVER 20 MINUTES FOR 1 DAY IN NS 50 ML
     Route: 042
     Dates: start: 20160902, end: 20160902
  12. DIPHENHYDRAMINE HCL [Interacting]
     Active Substance: DIPHENHYDRAMINE HYDROCHLORIDE
     Dosage: 25 MILLIGRAM, SINGLE
     Route: 042
     Dates: start: 20170929, end: 20170929
  13. DEXAMETHASONE SODIUM PHOSPHATE. [Concomitant]
     Active Substance: DEXAMETHASONE SODIUM PHOSPHATE
     Dosage: 10 MILLIGRAM DAILY OVER 20 MINUTES FOR 1 DAY IN NS 50 ML
     Route: 042
     Dates: start: 20160909, end: 20160909
  14. DEXAMETHASONE SODIUM PHOSPHATE. [Concomitant]
     Active Substance: DEXAMETHASONE SODIUM PHOSPHATE
     Dosage: 10 MILLIGRAM, SINGLE
     Route: 042
     Dates: start: 20171006, end: 20171006
  15. DIPHENHYDRAMINE HCL [Interacting]
     Active Substance: DIPHENHYDRAMINE HYDROCHLORIDE
     Dosage: 25 MILLIGRAM, SINGLE
     Route: 042
     Dates: start: 20171006, end: 20171006
  16. DIPHENHYDRAMINE HCL [Interacting]
     Active Substance: DIPHENHYDRAMINE HYDROCHLORIDE
     Dosage: 25 MILLIGRAM, SINGLE
     Route: 042
     Dates: start: 20180518, end: 20180518
  17. INJECTAFER [Suspect]
     Active Substance: FERRIC CARBOXYMALTOSE
     Indication: IRON DEFICIENCY ANAEMIA
     Dosage: 750 MILLIGRAM DAILY OVER 15 MINUTES FOR 1 DAY IN NS 250 ML
     Route: 042
     Dates: start: 20150313, end: 20150313
  18. INJECTAFER [Suspect]
     Active Substance: FERRIC CARBOXYMALTOSE
     Dosage: 750 MILLIGRAM, SINGLE
     Route: 042
     Dates: start: 20180511, end: 20180511
  19. DIPHENHYDRAMINE HCL [Interacting]
     Active Substance: DIPHENHYDRAMINE HYDROCHLORIDE
     Indication: PREMEDICATION
     Dosage: 25 MILLIGRAM DAILY OVER 1 MINUTE FOR 1 DAY
     Dates: start: 20160902, end: 20160902
  20. PEPCID [Concomitant]
     Active Substance: FAMOTIDINE
     Dosage: 20 MILLIGRAM DAILY OVER 20 MINUTES FOR 1 DAY IN NS 50 ML
     Route: 042
     Dates: start: 20160909, end: 20160909
  21. INJECTAFER [Suspect]
     Active Substance: FERRIC CARBOXYMALTOSE
     Indication: MALABSORPTION
     Dosage: 750 MILLIGRAM DAILY OVER 15 MINUTES FOR 1 DAY IN NS 250 ML
     Route: 042
     Dates: start: 20160902, end: 20160902
  22. HYDROCHLOROTHIAZIDE. [Concomitant]
     Active Substance: HYDROCHLOROTHIAZIDE
     Indication: HYPERTENSION
     Dosage: 25 MILLIGRAM, QD
     Route: 048
  23. DEXAMETHASONE SODIUM PHOSPHATE. [Concomitant]
     Active Substance: DEXAMETHASONE SODIUM PHOSPHATE
     Dosage: 10 MILLIGRAM, SINGLE
     Route: 042
     Dates: start: 20180511, end: 20180511
  24. DEXAMETHASONE SODIUM PHOSPHATE. [Concomitant]
     Active Substance: DEXAMETHASONE SODIUM PHOSPHATE
     Dosage: 10 MILLIGRAM, SINGLE
     Route: 042
     Dates: start: 20180518, end: 20180518
  25. DIPHENHYDRAMINE HCL [Interacting]
     Active Substance: DIPHENHYDRAMINE HYDROCHLORIDE
     Dosage: 25 MILLIGRAM DAILY OVER 1 MINUTE FOR 1 DAY
     Dates: start: 20160909, end: 20160909
  26. PEPCID [Concomitant]
     Active Substance: FAMOTIDINE
     Indication: PREMEDICATION
     Dosage: 20 MILLIGRAM DAILY OVER 20 MINUTES FOR 1 DAY IN NS 50 ML
     Route: 042
     Dates: start: 20160902, end: 20160902
  27. PEPCID [Concomitant]
     Active Substance: FAMOTIDINE
     Dosage: 20 MILLIGRAM, SINGLE
     Route: 042
     Dates: start: 20171006, end: 20171006
  28. PEPCID [Concomitant]
     Active Substance: FAMOTIDINE
     Dosage: 20 MILLIGRAM, SINGLE
     Route: 042
     Dates: start: 20180518, end: 20180518

REACTIONS (16)
  - Tachycardia [Not Recovered/Not Resolved]
  - Emotional distress [Not Recovered/Not Resolved]
  - Oedema peripheral [Not Recovered/Not Resolved]
  - Dizziness [Not Recovered/Not Resolved]
  - Chest pain [Not Recovered/Not Resolved]
  - Dyspnoea [Not Recovered/Not Resolved]
  - Anxiety [Not Recovered/Not Resolved]
  - Muscle spasms [Not Recovered/Not Resolved]
  - Hypophosphataemia [Not Recovered/Not Resolved]
  - Myalgia [Not Recovered/Not Resolved]
  - Peripheral venous disease [Not Recovered/Not Resolved]
  - Condition aggravated [Not Recovered/Not Resolved]
  - Anhedonia [Not Recovered/Not Resolved]
  - Pain [Not Recovered/Not Resolved]
  - Product quality issue [Not Recovered/Not Resolved]
  - Palpitations [Not Recovered/Not Resolved]

NARRATIVE: CASE EVENT DATE: 2016
